FAERS Safety Report 25800794 (Version 6)
Quarter: 2025Q4

REPORT INFORMATION
  Report Type: Report from Study
  Country: CA (occurrence: CA)
  Receive Date: 20250915
  Receipt Date: 20251229
  Transmission Date: 20260118
  Serious: Yes (Hospitalization, Other)
  Sender: Alvotech
  Company Number: CA-JAMP PHARMA CORPORATION-2022-JAM-CA-00704

PATIENT
  Age: 33 Year
  Sex: Female

DRUGS (2)
  1. SIMLANDI [Suspect]
     Active Substance: ADALIMUMAB-RYVK
     Indication: Ankylosing spondylitis
     Dosage: 40 MILLIGRAM, EVERY 2 WEEKS
     Route: 058
  2. SIMLANDI [Suspect]
     Active Substance: ADALIMUMAB-RYVK
     Indication: Ankylosing spondylitis
     Dosage: 40 MILLIGRAM, EVERY 2 WEEKS
     Route: 058
     Dates: start: 20221110, end: 202310

REACTIONS (12)
  - Condition aggravated [Recovering/Resolving]
  - Ankylosing spondylitis [Unknown]
  - Illness [Unknown]
  - Fall [Unknown]
  - Joint injury [Unknown]
  - Malaise [Not Recovered/Not Resolved]
  - Psoriasis [Not Recovered/Not Resolved]
  - Pain [Unknown]
  - Alopecia [Unknown]
  - Discomfort [Unknown]
  - Insurance issue [Unknown]
  - Overwork [Unknown]

NARRATIVE: CASE EVENT DATE: 20221101
